FAERS Safety Report 16826199 (Version 2)
Quarter: 2019Q4

REPORT INFORMATION
  Report Type: Spontaneous
  Country: US (occurrence: US)
  Receive Date: 20190919
  Receipt Date: 20191101
  Transmission Date: 20200122
  Serious: Yes (Other)
  Sender: FDA-Public Use
  Company Number: PHEH2019US038570

PATIENT
  Age: 56 Year
  Sex: Male

DRUGS (4)
  1. AMIKACIN. [Suspect]
     Active Substance: AMIKACIN
     Indication: MYCOBACTERIUM AVIUM COMPLEX INFECTION
     Dosage: 5 MG/KG (MONDAY, WEDNESDAY AND FRIDAY)
     Route: 042
     Dates: start: 20190708
  2. RIFAMPIN. [Suspect]
     Active Substance: RIFAMPIN
     Indication: MYCOBACTERIUM AVIUM COMPLEX INFECTION
     Dosage: 600 MG, QD
     Route: 048
     Dates: start: 20190615
  3. AZITHROMYCIN ANHYDROUS. [Suspect]
     Active Substance: AZITHROMYCIN ANHYDROUS
     Indication: MYCOBACTERIUM AVIUM COMPLEX INFECTION
     Dosage: 50 MG, QD
     Route: 048
     Dates: start: 20190715
  4. ETHAMBUTOL [Suspect]
     Active Substance: ETHAMBUTOL HYDROCHLORIDE
     Indication: MYCOBACTERIUM AVIUM COMPLEX INFECTION
     Dosage: 15 MG/KG, UNKNOWN
     Route: 048
     Dates: start: 20190715, end: 20190828

REACTIONS (4)
  - Vision blurred [Unknown]
  - Dyschromatopsia [Unknown]
  - Pulmonary hypertension [Unknown]
  - Colour blindness [Recovered/Resolved]

NARRATIVE: CASE EVENT DATE: 20190822
